FAERS Safety Report 18532165 (Version 1)
Quarter: 2020Q4

REPORT INFORMATION
  Report Type: Spontaneous
  Country: CN (occurrence: CN)
  Receive Date: 20201123
  Receipt Date: 20201123
  Transmission Date: 20210114
  Serious: Yes (Other)
  Sender: FDA-Public Use
  Company Number: CN-BAXTER-2020BAX023481

PATIENT
  Age: 46 Year
  Sex: Male
  Weight: 75 kg

DRUGS (2)
  1. 20% MANNITOL INJECTION [Suspect]
     Active Substance: MANNITOL
     Indication: OEDEMA
  2. 20% MANNITOL INJECTION [Suspect]
     Active Substance: MANNITOL
     Indication: DIURETIC THERAPY
     Route: 041
     Dates: start: 20201026, end: 20201030

REACTIONS (2)
  - Rash [Recovering/Resolving]
  - Pruritus [Recovering/Resolving]

NARRATIVE: CASE EVENT DATE: 20201030
